FAERS Safety Report 7279227-X (Version None)
Quarter: 2011Q1

REPORT INFORMATION
  Report Type: 
  Country: None (occurrence: None)
  Receive Date: 20110207
  Receipt Date: 20110125
  Transmission Date: 20110831
  Serious: Yes (Other)
  Sender: FDA-Public Use
  Company Number: DE-WATSON-2011-01261

PATIENT
  Sex: Male
  Weight: 82 kg

DRUGS (6)
  1. ASPIRIN [Concomitant]
     Indication: PRODUCT USED FOR UNKNOWN INDICATION
     Dosage: 100 MG, DAILY
     Dates: start: 20100208
  2. METFORMIN HCL [Suspect]
     Indication: DIABETES MELLITUS
     Dosage: 850 MG, TID
     Route: 048
     Dates: start: 20100208
  3. METOPROLOL SUCCINATE [Concomitant]
     Indication: PRODUCT USED FOR UNKNOWN INDICATION
  4. ENALAPRIL HCT [Suspect]
     Indication: HYPERTENSION
     Dosage: 10MG/25MG, DAILY
     Route: 048
     Dates: start: 20100916, end: 20100919
  5. EXFORGE HCT [Suspect]
     Indication: HYPERTENSION
     Dosage: 10MG/320MG/25MG, DAILY
     Route: 048
     Dates: start: 20100722, end: 20101007
  6. PANTOPRAZOLE [Concomitant]
     Indication: GASTROOESOPHAGEAL REFLUX DISEASE
     Dosage: 40 MG, DAILY
     Dates: start: 20100208

REACTIONS (5)
  - STUPOR [None]
  - CHEST DISCOMFORT [None]
  - VERTIGO POSITIONAL [None]
  - OVERDOSE [None]
  - OEDEMA [None]
